FAERS Safety Report 5313537-8 (Version None)
Quarter: 2007Q2

REPORT INFORMATION
  Report Type: 
  Country: None (occurrence: None)
  Receive Date: 20070501
  Receipt Date: 20070206
  Transmission Date: 20071010
  Serious: No
  Sender: FDA-Public Use
  Company Number: 2007UW02548

PATIENT
  Age: 38 Year
  Sex: Female
  Weight: 81.2 kg

DRUGS (14)
  1. ENTOCORT EC [Suspect]
     Indication: COLITIS COLLAGENOUS
     Route: 048
     Dates: start: 20050101
  2. ASCORBIC ACID [Concomitant]
  3. AVINZA [Concomitant]
  4. SOMA [Concomitant]
  5. MORPHINE SULFATE [Concomitant]
  6. DAYPRO [Concomitant]
  7. CELEXA [Concomitant]
  8. REMERON [Concomitant]
  9. ADDERIL [Concomitant]
  10. AMBIEN [Concomitant]
  11. SEROQUEL [Concomitant]
     Route: 048
  12. LEVOXYL [Concomitant]
  13. XANAX [Concomitant]
  14. ZYRTEC [Concomitant]

REACTIONS (4)
  - CONTUSION [None]
  - DECREASED APPETITE [None]
  - PROTEIN TOTAL ABNORMAL [None]
  - WEIGHT DECREASED [None]
